FAERS Safety Report 4951166-6 (Version None)
Quarter: 2006Q1

REPORT INFORMATION
  Report Type: 
  Country: None (occurrence: None)
  Receive Date: 20060315
  Receipt Date: 20060310
  Transmission Date: 20060701
  Serious: Yes (Disabling)
  Sender: FDA-Public Use
  Company Number: CHWYE335926JAN06

PATIENT
  Age: 43 Year
  Sex: Male

DRUGS (4)
  1. EFFEXOR [Suspect]
     Indication: DEPRESSION
     Dosage: 37.5 MG 1X PER 1 DAY; 75 MG 1X PER 1 DAY
     Route: 048
     Dates: start: 20050401, end: 20050410
  2. EFFEXOR [Suspect]
     Indication: DEPRESSION
     Dosage: 37.5 MG 1X PER 1 DAY; 75 MG 1X PER 1 DAY
     Route: 048
     Dates: start: 20050411, end: 20050520
  3. ACETAMINOPHEN [Concomitant]
  4. NEURONTIN [Concomitant]

REACTIONS (3)
  - FATIGUE [None]
  - GAIT DISTURBANCE [None]
  - PSYCHOSOMATIC DISEASE [None]
